FAERS Safety Report 7459713-X (Version None)
Quarter: 2011Q2

REPORT INFORMATION
  Report Type: 
  Country: None (occurrence: None)
  Receive Date: 20110505
  Receipt Date: 20110224
  Transmission Date: 20111010
  Serious: Yes (Other)
  Sender: FDA-Public Use
  Company Number: US-BAYER-201036546NA

PATIENT
  Age: 22 Year
  Sex: Female
  Weight: 95 kg

DRUGS (15)
  1. FLONASE [Concomitant]
     Dosage: UNK
     Route: 045
  2. YAZ [Suspect]
     Indication: PREMENSTRUAL SYNDROME
  3. YAZ [Suspect]
     Indication: POLYCYSTIC OVARIES
  4. YASMIN [Suspect]
     Indication: ACNE
     Dosage: UNK
     Dates: start: 20050401, end: 20060101
  5. YASMIN [Suspect]
     Indication: CONTRACEPTION
     Dosage: UNK
     Route: 048
     Dates: start: 20050401, end: 20090301
  6. YASMIN [Suspect]
     Indication: PREMENSTRUAL SYNDROME
  7. YASMIN [Suspect]
     Indication: POLYCYSTIC OVARIES
  8. VIGAMOX [Concomitant]
     Route: 047
  9. ERYTHROMYCIN [Concomitant]
  10. NSAID'S [Concomitant]
     Dosage: UNK UNK, PRN
  11. YAZ [Suspect]
     Indication: ACNE
     Dosage: UNK
     Dates: start: 20080701, end: 20090801
  12. ZOLOFT [Concomitant]
     Dosage: 100 MG, UNK
  13. ALLEGRA-D 12 HOUR [Concomitant]
     Route: 045
  14. YAZ [Suspect]
     Indication: CONTRACEPTION
     Dosage: UNK
     Route: 048
     Dates: start: 20090401, end: 20090601
  15. PROTONIX [Concomitant]

REACTIONS (8)
  - GASTRITIS [None]
  - CHOLECYSTITIS ACUTE [None]
  - REFLUX OESOPHAGITIS [None]
  - CHOLELITHIASIS [None]
  - GALLBLADDER INJURY [None]
  - ABDOMINAL PAIN [None]
  - CHOLECYSTITIS CHRONIC [None]
  - BARRETT'S OESOPHAGUS [None]
